FAERS Safety Report 8581485-6 (Version None)
Quarter: 2012Q2

REPORT INFORMATION
  Report Type: 
  Country: None (occurrence: None)
  Receive Date: 20120423
  Receipt Date: 20100728
  Transmission Date: 20120825
  Serious: Yes (Other)
  Sender: FDA-Public Use
  Company Number: PHHY2010US18089

PATIENT
  Age: 77 Year
  Sex: Male
  Weight: 90.1 kg

DRUGS (1)
  1. EXJADE [Suspect]
     Indication: MYELODYSPLASTIC SYNDROME
     Dosage: 500 MG, TID, ORAL
     Route: 048
     Dates: start: 20100302

REACTIONS (3)
  - NEOPLASM MALIGNANT [None]
  - LEUKAEMIA [None]
  - DIARRHOEA [None]
